FAERS Safety Report 8591372 (Version 4)
Quarter: 2013Q4

REPORT INFORMATION
  Report Type: Spontaneous
  Country: US (occurrence: US)
  Receive Date: 20120601
  Receipt Date: 20131119
  Transmission Date: 20140711
  Serious: Yes (Disabling, Other)
  Sender: FDA-Public Use
  Company Number: US-NOVEN-11US002922

PATIENT
  Sex: Male
  Weight: 27.21 kg

DRUGS (1)
  1. DAYTRANA [Suspect]
     Indication: ATTENTION DEFICIT/HYPERACTIVITY DISORDER
     Dosage: 20 MG, QD
     Route: 062
     Dates: start: 200810, end: 201105

REACTIONS (2)
  - Vitiligo [Not Recovered/Not Resolved]
  - Psychological trauma [Not Recovered/Not Resolved]
